FAERS Safety Report 25395291 (Version 5)
Quarter: 2025Q4

REPORT INFORMATION
  Report Type: Spontaneous
  Country: JP (occurrence: JP)
  Receive Date: 20250604
  Receipt Date: 20251110
  Transmission Date: 20260117
  Serious: Yes (Disabling, Other)
  Sender: DAIICHI
  Company Number: JP-DSJP-DS-2025-142677-JP

PATIENT
  Age: 64 Year
  Sex: Female
  Weight: 54.9 kg

DRUGS (1)
  1. DATROWAY [Suspect]
     Active Substance: DATOPOTAMAB DERUXTECAN-DLNK
     Indication: Hormone receptor positive HER2 negative breast cancer
     Dosage: 6MG/KG,ONCE EVERY 3 WK
     Route: 041
     Dates: start: 20250430, end: 20250430

REACTIONS (4)
  - Intraocular pressure increased [Recovering/Resolving]
  - Corneal epitheliopathy [Recovering/Resolving]
  - Infectious iridocyclitis [Recovering/Resolving]
  - Stomatitis [Unknown]

NARRATIVE: CASE EVENT DATE: 20250518
